FAERS Safety Report 10980582 (Version 2)
Quarter: 2015Q2

REPORT INFORMATION
  Report Type: Spontaneous
  Country: US (occurrence: US)
  Receive Date: 20150402
  Receipt Date: 20150526
  Transmission Date: 20150821
  Serious: No
  Sender: FDA-Public Use
  Company Number: US-JNJFOC-20141109499

PATIENT
  Age: 78 Year
  Sex: Male
  Weight: 106.6 kg

DRUGS (2)
  1. IMODIUM A-D [Suspect]
     Active Substance: LOPERAMIDE HYDROCHLORIDE
     Indication: DIARRHOEA
     Dosage: 3 TABLESPOONS AT 2:30 AM??3TABLESPOONS AT 8:30AM??2TABLESPOONS AT 9:30 AM
     Route: 048
     Dates: start: 20141109
  2. IMODIUM A-D [Suspect]
     Active Substance: LOPERAMIDE HYDROCHLORIDE
     Route: 048

REACTIONS (3)
  - Accidental overdose [Unknown]
  - Expired product administered [Unknown]
  - Product label issue [Unknown]
